FAERS Safety Report 24282312 (Version 2)
Quarter: 2024Q3

REPORT INFORMATION
  Report Type: Spontaneous
  Country: IN (occurrence: US)
  Receive Date: 20240904
  Receipt Date: 20240916
  Transmission Date: 20241017
  Serious: Yes (Hospitalization, Disabling)
  Sender: PFIZER
  Company Number: IN-PFIZER INC-202400248083

PATIENT
  Age: 44 Year
  Sex: Female
  Weight: 56.5 kg

DRUGS (4)
  1. METHOTREXATE SODIUM [Suspect]
     Active Substance: METHOTREXATE SODIUM
     Indication: Central nervous system lymphoma
     Dosage: 8000 MG/M2
     Route: 042
     Dates: start: 20240723
  2. TIRABRUTINIB [Concomitant]
     Active Substance: TIRABRUTINIB
     Dates: start: 20240730, end: 20240731
  3. RITUXIMAB [Concomitant]
     Active Substance: RITUXIMAB
     Indication: Central nervous system lymphoma
     Dosage: 375 MG/M2
     Dates: start: 20240725
  4. TEMOZOLOMIDE [Concomitant]
     Active Substance: TEMOZOLOMIDE
     Indication: Central nervous system lymphoma
     Dosage: 240 MG
     Dates: start: 20240723, end: 20240729

REACTIONS (1)
  - Leukoencephalopathy [Recovered/Resolved]

NARRATIVE: CASE EVENT DATE: 20240727
